FAERS Safety Report 7272140-3 (Version None)
Quarter: 2011Q1

REPORT INFORMATION
  Report Type: 
  Country: None (occurrence: None)
  Receive Date: 20110128
  Receipt Date: 20110117
  Transmission Date: 20110831
  Serious: Yes (Hospitalization)
  Sender: FDA-Public Use
  Company Number: 808740

PATIENT
  Age: 49 Year
  Sex: Male

DRUGS (2)
  1. IRINOTECAN HYDROCHLORIDE [Suspect]
     Indication: GLIOBLASTOMA MULTIFORME
     Dosage: 175 MG MILLIGRAM(S)
     Dates: start: 20101223, end: 20101223
  2. AVASTIN [Suspect]
     Indication: GLIOBLASTOMA MULTIFORME
     Dosage: 700 MG MILLIGRAM(S), INTRAVENOUS
     Route: 042
     Dates: start: 20101223, end: 20101223

REACTIONS (3)
  - NEOPLASM MALIGNANT [None]
  - EPILEPSY [None]
  - GLIOBLASTOMA MULTIFORME [None]
